FAERS Safety Report 6760912-0 (Version None)
Quarter: 2010Q2

REPORT INFORMATION
  Report Type: 
  Country: None (occurrence: None)
  Receive Date: 20100608
  Receipt Date: 20100607
  Transmission Date: 20101027
  Serious: Yes (Other)
  Sender: FDA-Public Use
  Company Number: US-BRISTOL-MYERS SQUIBB COMPANY-15136849

PATIENT

DRUGS (1)
  1. ABILIFY [Suspect]
     Dosage: DF =TITRATED UP TO 10MG.

REACTIONS (1)
  - GENERALISED OEDEMA [None]
